FAERS Safety Report 9249686 (Version 2)
Quarter: 2013Q4

REPORT INFORMATION
  Report Type: Spontaneous
  Country: GB (occurrence: GB)
  Receive Date: 20130423
  Receipt Date: 20131106
  Transmission Date: 20140711
  Serious: Yes (Other)
  Sender: FDA-Public Use
  Company Number: GB-WATSON-2013-06881

PATIENT
  Age: 78 Year
  Sex: Male
  Weight: 80 kg

DRUGS (1)
  1. RAMIPRIL (UNKNOWN) [Suspect]
     Indication: RENAL FAILURE
     Dosage: 5 MG, DAILY
     Route: 048
     Dates: start: 20121005, end: 20121015

REACTIONS (4)
  - Neuropathy peripheral [Not Recovered/Not Resolved]
  - Sensory loss [Not Recovered/Not Resolved]
  - Balance disorder [Unknown]
  - Dyspnoea [Recovered/Resolved]
